FAERS Safety Report 8818514 (Version 2)
Quarter: 2012Q4

REPORT INFORMATION
  Report Type: Report from Study
  Country: US (occurrence: US)
  Receive Date: 20121001
  Receipt Date: 20121109
  Transmission Date: 20130627
  Serious: Yes (Hospitalization)
  Sender: FDA-Public Use
  Company Number: US-ROCHE-1132862

PATIENT
  Age: 69 Year
  Sex: Male
  Weight: 64 kg

DRUGS (10)
  1. RITUXIMAB [Suspect]
     Indication: CHRONIC LYMPHOCYTIC LEUKAEMIA
     Route: 042
     Dates: start: 20120810, end: 20120907
  2. RITUXIMAB [Suspect]
     Route: 042
     Dates: start: 20120911
  3. GS-1101 [Suspect]
     Indication: CHRONIC LYMPHOCYTIC LEUKAEMIA
     Route: 048
     Dates: start: 20120810, end: 20120907
  4. GS-1101 [Suspect]
     Route: 048
     Dates: start: 20120911
  5. CHLORAMBUCIL [Suspect]
     Indication: CHRONIC LYMPHOCYTIC LEUKAEMIA
     Route: 048
     Dates: start: 20120810, end: 20120907
  6. CHLORAMBUCIL [Suspect]
     Route: 065
     Dates: start: 20120911
  7. ACYCLOVIR [Concomitant]
     Route: 065
     Dates: start: 20120810
  8. ALLOPURINOL [Concomitant]
     Route: 065
     Dates: start: 20120810
  9. CIPROFLOXACIN [Concomitant]
     Route: 065
     Dates: start: 20120810
  10. LISINOPRIL [Concomitant]
     Route: 065
     Dates: start: 20120427

REACTIONS (6)
  - Bacteraemia [Recovered/Resolved]
  - Diarrhoea [Recovered/Resolved]
  - Gastrointestinal haemorrhage [Recovered/Resolved]
  - Pneumonia fungal [Not Recovered/Not Resolved]
  - Vomiting [None]
  - Haematochezia [None]
